FAERS Safety Report 22381289 (Version 1)
Quarter: 2023Q2

REPORT INFORMATION
  Report Type: Spontaneous
  Country: CH (occurrence: CH)
  Receive Date: 20230530
  Receipt Date: 20230530
  Transmission Date: 20230721
  Serious: Yes (Other)
  Sender: FDA-Public Use
  Company Number: CH-002147023-NVSC2023CH118423

PATIENT
  Age: 86 Year
  Sex: Female

DRUGS (3)
  1. ASCIMINIB [Suspect]
     Active Substance: ASCIMINIB
     Indication: Chronic myeloid leukaemia
     Dosage: 40 MG, BID
     Route: 065
     Dates: start: 20220309
  2. ASCIMINIB [Suspect]
     Active Substance: ASCIMINIB
     Dosage: ADJUSTED DOSES HALF DAYS INTERVAL
     Route: 065
     Dates: start: 20220720
  3. ASPIRIN [Concomitant]
     Active Substance: ASPIRIN
     Indication: Cerebellar stroke
     Dosage: UNK
     Route: 065
     Dates: start: 202012

REACTIONS (2)
  - Thrombocytopenia [Unknown]
  - Gastric cancer [Unknown]
